FAERS Safety Report 9586049 (Version 2)
Quarter: 2013Q4

REPORT INFORMATION
  Report Type: Spontaneous
  Country: US (occurrence: US)
  Receive Date: 20131003
  Receipt Date: 20131129
  Transmission Date: 20140711
  Serious: No
  Sender: FDA-Public Use
  Company Number: US-PFIZER INC-2013281781

PATIENT
  Age: 57 Year
  Sex: Male
  Weight: 97.51 kg

DRUGS (5)
  1. FLECTOR [Suspect]
     Indication: ARTHRALGIA
     Dosage: UNK
     Dates: start: 20130927, end: 20130928
  2. FLECTOR [Suspect]
     Indication: TENDON PAIN
  3. LAMOTRIGINE [Concomitant]
     Dosage: UNK
  4. OLANZAPINE [Concomitant]
     Dosage: UNK
  5. MELOXICAM [Concomitant]
     Dosage: UNK

REACTIONS (1)
  - Drug ineffective [Unknown]
